FAERS Safety Report 8467491-0 (Version None)
Quarter: 2012Q2

REPORT INFORMATION
  Report Type: 
  Country: None (occurrence: None)
  Receive Date: 20120620
  Receipt Date: 20120606
  Transmission Date: 20120825
  Serious: Yes (Hospitalization, Other)
  Sender: FDA-Public Use
  Company Number: DSU-2012-04595

PATIENT
  Age: 58 Year
  Sex: Female
  Weight: 78.9259 kg

DRUGS (8)
  1. NOVOLOG (INSULIN ASPART) (INSULIN ASPART) [Concomitant]
  2. SULFAM + TRI (BACTRIM) (SULFAMETHOXAZOLE, TRIMETHOPRIM) (SULFAMETHOXAZ [Concomitant]
  3. ONGLYZA (SAXAGLIPTIN) (SAXAGLIPTIN) [Concomitant]
  4. VEGF TRAP-EYE (INGREDIENTS UNSPECIFIED) [Suspect]
     Indication: DIABETIC RETINAL OEDEMA
     Dosage: INTRAVITREAL
     Dates: start: 20111006, end: 20111006
  5. AZOR [Suspect]
     Indication: HYPERTENSION
     Dosage: 5/20 MG (QD), PER ORAL
     Route: 048
     Dates: start: 20110809
  6. LEVEMIR [Concomitant]
  7. EXTRA-STRENGTH TYLENOL (PARACETAMOL) (PARACETAMOL) [Concomitant]
  8. VITAMIN B12 (CYANOCOBALAMIN) (CYANOCOBALAMIN) [Concomitant]

REACTIONS (24)
  - RENAL FAILURE ACUTE [None]
  - ANAEMIA [None]
  - DIARRHOEA [None]
  - CONDITION AGGRAVATED [None]
  - RENAL CYST [None]
  - PERICARDIAL EFFUSION [None]
  - PLEURAL EFFUSION [None]
  - METASTATIC GASTRIC CANCER [None]
  - ESCHERICHIA URINARY TRACT INFECTION [None]
  - METABOLIC ACIDOSIS [None]
  - BLOOD PRESSURE INADEQUATELY CONTROLLED [None]
  - RENAL TUBULAR DISORDER [None]
  - DIVERTICULITIS [None]
  - INCISION SITE PAIN [None]
  - URINARY TRACT INFECTION [None]
  - GASTRIC POLYPS [None]
  - DIVERTICULUM [None]
  - GASTRIC CANCER STAGE 0 [None]
  - BLOOD URIC ACID INCREASED [None]
  - CARDIOMEGALY [None]
  - GASTROINTESTINAL HAEMORRHAGE [None]
  - IRON DEFICIENCY ANAEMIA [None]
  - EJECTION FRACTION DECREASED [None]
  - SINUS TACHYCARDIA [None]
